FAERS Safety Report 5606375-X (Version None)
Quarter: 2008Q1

REPORT INFORMATION
  Report Type: 
  Country: None (occurrence: None)
  Receive Date: 20080129
  Receipt Date: 20070801
  Transmission Date: 20080703
  Serious: No
  Sender: FDA-Public Use
  Company Number: A0668168A

PATIENT
  Age: 48 Year
  Sex: Male
  Weight: 90.9 kg

DRUGS (4)
  1. WELLBUTRIN [Suspect]
     Indication: DEPRESSION
     Dosage: 10MG PER DAY
     Route: 048
     Dates: start: 20070501, end: 20070501
  2. LUNESTA [Suspect]
     Indication: INSOMNIA
     Dosage: 3MG UNKNOWN
     Route: 048
     Dates: start: 20070501, end: 20070629
  3. SIMVASTATIN [Concomitant]
  4. LEXAPRO [Concomitant]
     Dates: start: 20070501

REACTIONS (1)
  - TREMOR [None]
